FAERS Safety Report 7366365-6 (Version None)
Quarter: 2011Q1

REPORT INFORMATION
  Report Type: 
  Country: None (occurrence: None)
  Receive Date: 20110322
  Receipt Date: 20110223
  Transmission Date: 20110831
  Serious: No
  Sender: FDA-Public Use
  Company Number: US-B.I. PHARMACEUTICALS,INC./RIDGEFIELD-2010-BP-14214BP

PATIENT
  Sex: Male

DRUGS (7)
  1. FISH OIL [Concomitant]
     Indication: VITAMIN SUPPLEMENTATION
  2. BLUTINTHOL [Concomitant]
     Indication: ANXIETY
  3. MEGADOR [Concomitant]
     Indication: ATRIAL FIBRILLATION
  4. VALIUM [Concomitant]
     Indication: ANXIETY DISORDER
  5. MULTAQ [Suspect]
  6. HIGH BLOOD PRESSURE MEDICATION [Concomitant]
     Indication: HYPERTENSION
  7. PRADAXA [Suspect]
     Indication: ATRIAL FIBRILLATION
     Dosage: 300 MG
     Route: 048
     Dates: start: 20101101

REACTIONS (3)
  - DYSPEPSIA [None]
  - ABDOMINAL DISTENSION [None]
  - HEADACHE [None]
